FAERS Safety Report 13442123 (Version 1)
Quarter: 2017Q2

REPORT INFORMATION
  Report Type: Spontaneous
  Country: US (occurrence: US)
  Receive Date: 20170413
  Receipt Date: 20170413
  Transmission Date: 20170830
  Serious: Yes (Life-Threatening, Disabling, Other)
  Sender: FDA-Public Use
  Company Number: None

PATIENT
  Age: 54 Year
  Sex: Female
  Weight: 82.1 kg

DRUGS (5)
  1. METFORMIN [Suspect]
     Active Substance: METFORMIN HYDROCHLORIDE
     Indication: DIABETES MELLITUS
     Route: 048
     Dates: start: 20161206, end: 20170405
  2. GLYBERIDE [Concomitant]
  3. NORVASC [Concomitant]
     Active Substance: AMLODIPINE BESYLATE
  4. LUMIGAN [Suspect]
     Active Substance: BIMATOPROST
     Indication: GLAUCOMA
     Dosage: DOSE - 2 BOTTLES
     Route: 047
     Dates: start: 20170403
  5. KEPPRA XR [Concomitant]
     Active Substance: LEVETIRACETAM

REACTIONS (3)
  - Dry skin [None]
  - Peripheral swelling [None]
  - Middle insomnia [None]

NARRATIVE: CASE EVENT DATE: 20161206
